FAERS Safety Report 11724241 (Version 1)
Quarter: 2015Q4

REPORT INFORMATION
  Report Type: Report from Study
  Country: GB (occurrence: UG)
  Receive Date: 20151111
  Receipt Date: 20151111
  Transmission Date: 20160304
  Serious: Yes (Other)
  Sender: FDA-Public Use
  Company Number: GB-BRISTOL-MYERS SQUIBB COMPANY-14251607

PATIENT
  Age: 39 Year
  Sex: Female

DRUGS (6)
  1. LOPINAVIR + RITONAVIR [Concomitant]
     Active Substance: LOPINAVIR\RITONAVIR
     Indication: HIV INFECTION
     Dosage: 1000 MG, QD
     Route: 048
     Dates: start: 20070514
  2. VIRAMUNE [Concomitant]
     Active Substance: NEVIRAPINE
     Indication: HIV INFECTION
     Dosage: 200 MG, QD
     Route: 048
     Dates: start: 20080218, end: 20080303
  3. AMOXICILLIN TRIHYDRATE [Suspect]
     Active Substance: AMOXICILLIN
     Indication: PRODUCT USED FOR UNKNOWN INDICATION
     Dosage: UNK
     Route: 065
     Dates: start: 20080121, end: 20080303
  4. VIRAMUNE [Concomitant]
     Active Substance: NEVIRAPINE
     Dosage: 400 MG, QD
     Route: 048
     Dates: start: 20080303
  5. VIDEX [Suspect]
     Active Substance: DIDANOSINE
     Indication: HIV INFECTION
     Dosage: 250 MG, QD
     Route: 048
     Dates: start: 20070514
  6. EFAVIRENZ [Suspect]
     Active Substance: EFAVIRENZ
     Indication: HIV INFECTION
     Dosage: 600 MG, QD
     Route: 048
     Dates: start: 20070514, end: 20080218

REACTIONS (14)
  - Keratitis [Unknown]
  - Upper respiratory tract infection [Unknown]
  - Blepharitis [Unknown]
  - Abortion spontaneous [Unknown]
  - Arthralgia [Unknown]
  - Seborrhoeic dermatitis [Unknown]
  - Pain [Unknown]
  - Conjunctivitis [Unknown]
  - Dermatitis atopic [Unknown]
  - Maternal exposure during pregnancy [Recovered/Resolved]
  - Pruritus [Unknown]
  - Arthritis [Unknown]
  - Eczema [Unknown]
  - Excoriation [Unknown]

NARRATIVE: CASE EVENT DATE: 20080315
